FAERS Safety Report 4682594-4 (Version None)
Quarter: 2005Q2

REPORT INFORMATION
  Report Type: 
  Country: None (occurrence: None)
  Receive Date: 20050531
  Receipt Date: 20050407
  Transmission Date: 20051028
  Serious: No
  Sender: FDA-Public Use
  Company Number: 2005BI007277

PATIENT
  Age: 52 Year
  Sex: Male

DRUGS (1)
  1. AMEVIVE [Suspect]
     Indication: PSORIASIS
     Dosage: 15 MG;QM;IM
     Route: 030
     Dates: start: 20050330, end: 20050406

REACTIONS (1)
  - ARTHRALGIA [None]
